FAERS Safety Report 21341136 (Version 1)
Quarter: 2022Q3

REPORT INFORMATION
  Report Type: Report from Study
  Country: DE (occurrence: DE)
  Receive Date: 20220916
  Receipt Date: 20220916
  Transmission Date: 20221027
  Serious: Yes (Hospitalization, Other)
  Sender: FDA-Public Use
  Company Number: None

PATIENT
  Sex: Female

DRUGS (6)
  1. METHOTREXATE [Suspect]
     Active Substance: METHOTREXATE
     Indication: Rheumatoid arthritis
     Dosage: UNIT DOSE : 10 MILLIGRAM , THERAPY START DATE AND END DATE : ASKU
  2. METHOTREXATE [Suspect]
     Active Substance: METHOTREXATE
     Dosage: UNIT DOSE : 20 MILLIGRAM , THERAPY START DATE AND END DATE : ASKU
  3. METHOTREXATE [Suspect]
     Active Substance: METHOTREXATE
     Dosage: UNIT DOSE : 15 MILLIGRAM , THERAPY START DATE AND END DATE : ASKU
  4. MABTHERA [Suspect]
     Active Substance: RITUXIMAB
     Indication: Rheumatoid arthritis
     Dosage: UNIT DOSE : 500 MILLIGRAM , THERAPY END DATE : ASKU
     Dates: start: 201702
  5. MABTHERA [Suspect]
     Active Substance: RITUXIMAB
     Dosage: UNIT  DOSE : 500 MILLIGRAM , THERAPY END DATE : ASKU
     Dates: start: 201608
  6. RITUXIMAB [Suspect]
     Active Substance: RITUXIMAB
     Indication: Rheumatoid arthritis
     Dosage: UNIT DOSE : 500 MILLIGRAM
     Dates: start: 201711, end: 20171130

REACTIONS (11)
  - Rheumatoid arthritis [Recovered/Resolved]
  - Lumbar spinal stenosis [Not Recovered/Not Resolved]
  - Device loosening [Not Recovered/Not Resolved]
  - Back pain [Not Recovered/Not Resolved]
  - Tricuspid valve incompetence [Unknown]
  - Hyperkeratosis [Unknown]
  - Skin discolouration [Not Recovered/Not Resolved]
  - Oral herpes [Recovered/Resolved]
  - Rash [Recovered/Resolved]
  - Tinea pedis [Unknown]
  - Eczema nummular [Unknown]

NARRATIVE: CASE EVENT DATE: 20171101
